FAERS Safety Report 5043644-9 (Version None)
Quarter: 2006Q2

REPORT INFORMATION
  Report Type: 
  Country: None (occurrence: None)
  Receive Date: 20060628
  Receipt Date: 20060619
  Transmission Date: 20061013
  Serious: Yes (Other)
  Sender: FDA-Public Use
  Company Number: 2006-06-1038

PATIENT
  Age: 59 Year
  Sex: Male

DRUGS (6)
  1. PEG-INTRON [Suspect]
     Indication: HEPATITIS C
     Dosage: 120 MCQ QW SUBCUTANEOUS
     Route: 058
     Dates: start: 20060310
  2. RIBASPHERE [Suspect]
     Indication: HEPATITIS C
     Dosage: 1000 MG QD ORAL
     Route: 048
     Dates: start: 20060310
  3. SULFATRIM DS TABLETS [Concomitant]
  4. PLAVIX [Concomitant]
  5. ZIAC [Concomitant]
  6. AMITRIPTYLINE HCL [Concomitant]

REACTIONS (3)
  - IMPAIRED HEALING [None]
  - SKIN ODOUR ABNORMAL [None]
  - SKIN ULCER [None]
